FAERS Safety Report 8470182-3 (Version None)
Quarter: 2012Q2

REPORT INFORMATION
  Report Type: 
  Country: None (occurrence: None)
  Receive Date: 20120621
  Receipt Date: 20120621
  Transmission Date: 20120825
  Serious: No
  Sender: FDA-Public Use
  Company Number: None

PATIENT
  Age: 66 Year
  Sex: Female
  Weight: 81.1939 kg

DRUGS (3)
  1. DALIRESP [Suspect]
     Indication: EMPHYSEMA
     Dosage: 500MCG ONE DAILY PO
     Route: 048
     Dates: start: 20120502, end: 20120620
  2. DALIRESP [Suspect]
     Indication: ASTHMA
     Dosage: 500MCG ONE DAILY PO
     Route: 048
     Dates: start: 20120502, end: 20120620
  3. DALIRESP [Suspect]
     Indication: CHRONIC OBSTRUCTIVE PULMONARY DISEASE
     Dosage: 500MCG ONE DAILY PO
     Route: 048
     Dates: start: 20120502, end: 20120620

REACTIONS (3)
  - DECREASED APPETITE [None]
  - BACK PAIN [None]
  - INSOMNIA [None]
